FAERS Safety Report 16646092 (Version 1)
Quarter: 2019Q3

REPORT INFORMATION
  Report Type: Spontaneous
  Country: US (occurrence: US)
  Receive Date: 20190730
  Receipt Date: 20190730
  Transmission Date: 20191004
  Serious: No
  Sender: FDA-Public Use
  Company Number: US-GLENMARK PHARMACEUTICALS-2019GMK040395

PATIENT

DRUGS (5)
  1. DOXYCYCLINE. [Concomitant]
     Active Substance: DOXYCYCLINE
     Indication: SUNBURN
     Dosage: UNK
     Route: 065
  2. SILVADENE [Concomitant]
     Active Substance: SILVER SULFADIAZINE
     Indication: SKIN LESION
  3. MUPIROCIN OINTMENT USP, 2% [Suspect]
     Active Substance: MUPIROCIN
     Indication: SCAB
     Dosage: UNK UNK, BID
     Route: 061
     Dates: start: 20190312, end: 20190318
  4. SILVADENE [Concomitant]
     Active Substance: SILVER SULFADIAZINE
     Indication: SCAB
     Dosage: UNK
     Route: 065
  5. MUPIROCIN OINTMENT USP, 2% [Suspect]
     Active Substance: MUPIROCIN
     Indication: SKIN LESION

REACTIONS (2)
  - Wrong technique in product usage process [Unknown]
  - Lip swelling [Recovered/Resolved]

NARRATIVE: CASE EVENT DATE: 2019
